FAERS Safety Report 5456553-8 (Version None)
Quarter: 2007Q3

REPORT INFORMATION
  Report Type: 
  Country: None (occurrence: None)
  Receive Date: 20070918
  Receipt Date: 20070914
  Transmission Date: 20080115
  Serious: Yes (Hospitalization)
  Sender: FDA-Public Use
  Company Number: B0485954A

PATIENT
  Age: 52 Year
  Sex: Female

DRUGS (8)
  1. VALTREX [Suspect]
     Indication: HERPES ZOSTER
     Dosage: 1000MG THREE TIMES PER DAY
     Route: 048
     Dates: start: 20070901, end: 20070903
  2. ANPLAG [Concomitant]
     Indication: SHUNT THROMBOSIS
     Dosage: 100MG PER DAY
     Route: 048
  3. EPADEL [Concomitant]
     Indication: SHUNT THROMBOSIS
     Dosage: 900MG PER DAY
     Route: 048
  4. SELBEX [Concomitant]
     Indication: GASTRITIS
     Dosage: 150MG PER DAY
     Route: 048
  5. ROCALTROL [Concomitant]
     Indication: HYPOPARATHYROIDISM SECONDARY
     Dosage: .25MCG PER DAY
     Route: 048
  6. PRAVASTATIN [Concomitant]
     Dosage: 5MG PER DAY
     Route: 048
  7. CALTAN [Concomitant]
     Dosage: 1000MG PER DAY
     Route: 048
  8. IBUPROFEN [Concomitant]
     Indication: NEURALGIA
     Route: 048
     Dates: start: 20070901, end: 20070903

REACTIONS (3)
  - CONFUSIONAL STATE [None]
  - DELUSION [None]
  - ENCEPHALOPATHY [None]
